FAERS Safety Report 10043302 (Version 2)
Quarter: 2014Q1

REPORT INFORMATION
  Report Type: Spontaneous
  Country: AU (occurrence: AU)
  Receive Date: 20140328
  Receipt Date: 20140328
  Transmission Date: 20141002
  Serious: Yes (Other)
  Sender: FDA-Public Use
  Company Number: AU-ACCORD-022700

PATIENT
  Age: 39 Year
  Sex: Male

DRUGS (4)
  1. ETOPOSIDE [Suspect]
     Indication: HEPATOSPLENIC T-CELL LYMPHOMA
  2. METHOTREXATE [Suspect]
     Indication: HEPATOSPLENIC T-CELL LYMPHOMA
  3. IFOSFAMIDE [Suspect]
     Indication: HEPATOSPLENIC T-CELL LYMPHOMA
  4. ASPARAGINASE [Suspect]
     Indication: HEPATOSPLENIC T-CELL LYMPHOMA

REACTIONS (2)
  - Lung infiltration [Unknown]
  - Neutropenic sepsis [Unknown]
